FAERS Safety Report 12387219 (Version 1)
Quarter: 2016Q2

REPORT INFORMATION
  Report Type: Report from Study
  Country: US (occurrence: US)
  Receive Date: 20160519
  Receipt Date: 20160519
  Transmission Date: 20160815
  Serious: No
  Sender: FDA-Public Use
  Company Number: ADR-2015-01440

PATIENT
  Age: 55 Year
  Sex: Female

DRUGS (16)
  1. COMPOUNDED BACLOFEN [Suspect]
     Active Substance: BACLOFEN
     Dosage: 1,101.1 MCG/DAY
     Route: 037
  2. DILAUDID [Suspect]
     Active Substance: HYDROMORPHONE HYDROCHLORIDE
     Dosage: 3.0474 MG/DAY
     Route: 037
     Dates: start: 20150529
  3. BUPIVACAINE. [Suspect]
     Active Substance: BUPIVACAINE
     Dosage: 6.095 MG/DAY
     Route: 036
     Dates: start: 20150529
  4. BUPIVACAINE. [Suspect]
     Active Substance: BUPIVACAINE
     Dosage: 6.096 MG/DAY
     Route: 037
     Dates: start: 20150601
  5. LYRICA [Concomitant]
     Active Substance: PREGABALIN
  6. COMPOUNDED BACLOFEN [Suspect]
     Active Substance: BACLOFEN
     Dosage: 1,218.1 MCG/DAY
     Route: 037
     Dates: start: 20150602
  7. COMPOUNDED BACLOFEN [Suspect]
     Active Substance: BACLOFEN
     Dosage: 1,219.1 MCG/DAY
     Route: 037
     Dates: start: 20150601
  8. DILAUDID [Suspect]
     Active Substance: HYDROMORPHONE HYDROCHLORIDE
     Dosage: 3.0478 MG/DAY
     Route: 037
     Dates: start: 20150601
  9. TIZANIDINE. [Concomitant]
     Active Substance: TIZANIDINE
  10. OXYCODONE [Concomitant]
     Active Substance: OXYCODONE
  11. BACLOFEN. [Suspect]
     Active Substance: BACLOFEN
     Route: 048
  12. DILAUDID [Suspect]
     Active Substance: HYDROMORPHONE HYDROCHLORIDE
     Dosage: 2.7527 MG/DAY
     Route: 037
  13. COMPOUNDED BACLOFEN [Suspect]
     Active Substance: BACLOFEN
     Dosage: 1,219 MCG/DAY
     Route: 037
     Dates: start: 20150529
  14. BUPIVACAINE. [Suspect]
     Active Substance: BUPIVACAINE
     Dosage: 5.505 MG/DAY
     Route: 037
  15. DILAUDID [Suspect]
     Active Substance: HYDROMORPHONE HYDROCHLORIDE
     Dosage: 3.0452 MG/DAY
     Route: 037
     Dates: start: 20150602
  16. BUPIVACAINE. [Suspect]
     Active Substance: BUPIVACAINE
     Dosage: 6.090 MG/DAY
     Route: 037
     Dates: start: 20150602

REACTIONS (8)
  - Muscle spasticity [Recovered/Resolved]
  - Dizziness [Recovered/Resolved]
  - Hypoaesthesia [Recovered/Resolved]
  - Therapeutic response decreased [Recovered/Resolved]
  - Infusion site fibrosis [Unknown]
  - Vision blurred [Recovered/Resolved]
  - Pain [Recovered/Resolved]
  - Paraesthesia [Recovered/Resolved]
